FAERS Safety Report 18458938 (Version 1)
Quarter: 2020Q4

REPORT INFORMATION
  Report Type: Spontaneous
  Country: NL (occurrence: NL)
  Receive Date: 20201103
  Receipt Date: 20201103
  Transmission Date: 20210114
  Serious: Yes (Hospitalization)
  Sender: FDA-Public Use
  Company Number: NL-NANJING KING-FRIEND BIOCHEMICAL PHARMACEUTICAL CO. LTD.-2020NKF00052

PATIENT
  Age: 60 Year
  Sex: Female

DRUGS (2)
  1. ENOXAPARIN SODIUM. [Suspect]
     Active Substance: ENOXAPARIN SODIUM
     Indication: DEEP VEIN THROMBOSIS
     Route: 065
  2. TISSUE PLASMINOGEN ACTIVATOR [Concomitant]
     Active Substance: ALTEPLASE
     Route: 065

REACTIONS (3)
  - Aphasia [Recovered/Resolved]
  - Quadriplegia [Recovered/Resolved]
  - Haematoma [Recovered/Resolved]
